FAERS Safety Report 6966266-9 (Version None)
Quarter: 2010Q3

REPORT INFORMATION
  Report Type: 
  Country: None (occurrence: None)
  Receive Date: 20100903
  Receipt Date: 20100823
  Transmission Date: 20110219
  Serious: Yes (Hospitalization)
  Sender: FDA-Public Use
  Company Number: ES-ELI_LILLY_AND_COMPANY-ES201008006935

PATIENT
  Sex: Female
  Weight: 77 kg

DRUGS (6)
  1. FORTEO [Suspect]
     Indication: OSTEOPOROSIS
     Dosage: 20 UG, DAILY (1/D)
     Route: 058
     Dates: start: 20080722, end: 20100722
  2. SERPRAM [Concomitant]
     Indication: DEPRESSION
     Dosage: 2 D/F, DAILY (1/D)
     Route: 048
  3. LORAZEPAM [Concomitant]
     Indication: SLEEP DISORDER THERAPY
     Dosage: 1 D/F, DAILY (1/D)
     Route: 048
  4. CORENITEC [Concomitant]
     Indication: HYPERTENSION
     Dosage: 1 D/F, 2/D
     Route: 048
  5. CALCIO [Concomitant]
     Indication: OSTEOPOROSIS
     Dosage: 1 D/F, DAILY (1/D)
     Route: 048
  6. LANSOPRAZOL [Concomitant]
     Dosage: 1 D/F, DAILY (1/D)
     Route: 048
     Dates: start: 20100821

REACTIONS (2)
  - FALL [None]
  - ULNA FRACTURE [None]
